FAERS Safety Report 9064669 (Version 1)
Quarter: 2013Q1

REPORT INFORMATION
  Report Type: Spontaneous
  Country: US (occurrence: US)
  Receive Date: 20130130
  Receipt Date: 20130130
  Transmission Date: 20140127
  Serious: No
  Sender: FDA-Public Use
  Company Number: US-B.I. PHARMACEUTICALS,INC./RIDGEFIELD-2013-BI-02484BP

PATIENT
  Age: 87 Year
  Sex: Female
  Weight: 57 kg

DRUGS (3)
  1. PRADAXA [Suspect]
     Indication: CEREBROVASCULAR ACCIDENT PROPHYLAXIS
     Dosage: 150 MG
     Route: 048
     Dates: start: 20120423, end: 20130115
  2. PRADAXA [Suspect]
     Indication: ATRIAL FIBRILLATION
  3. XARELTO [Concomitant]
     Indication: ATRIAL FIBRILLATION
     Dosage: 20 MG
     Route: 048
     Dates: start: 20130115

REACTIONS (2)
  - Alopecia [Not Recovered/Not Resolved]
  - Pruritus [Not Recovered/Not Resolved]
